FAERS Safety Report 12455908 (Version 1)
Quarter: 2016Q2

REPORT INFORMATION
  Report Type: Spontaneous
  Country: US (occurrence: US)
  Receive Date: 20160610
  Receipt Date: 20160610
  Transmission Date: 20160815
  Serious: Yes (Other)
  Sender: FDA-Public Use
  Company Number: US-TEVA-667567ACC

PATIENT
  Age: 74 Year
  Sex: Female

DRUGS (2)
  1. RITUXIMAB [Concomitant]
     Active Substance: RITUXIMAB
     Indication: NEUROLOGICAL SYMPTOM
     Dosage: FOR 4 WEEKS
     Route: 065
  2. BENDAMUSTINE HYDROCHLORIDE. [Suspect]
     Active Substance: BENDAMUSTINE HYDROCHLORIDE
     Indication: NEUROPATHY PERIPHERAL
     Dosage: EVERY 28 DAYS
     Route: 042

REACTIONS (4)
  - Herpes zoster [Unknown]
  - Hypogammaglobulinaemia [Unknown]
  - Diarrhoea [Recovered/Resolved]
  - Off label use [Unknown]
